FAERS Safety Report 6525746-0 (Version None)
Quarter: 2009Q4

REPORT INFORMATION
  Report Type: 
  Country: None (occurrence: None)
  Receive Date: 20091224
  Receipt Date: 20091209
  Transmission Date: 20100525
  Serious: Yes (Hospitalization)
  Sender: FDA-Public Use
  Company Number: DSA_42184_2009

PATIENT
  Age: 88 Year
  Sex: Female

DRUGS (7)
  1. ENALAPRIL MALEATE [Suspect]
     Indication: CARDIAC FAILURE
     Dosage: (12.5 MG QD ORAL)
     Route: 048
  2. GLIMEPIRIDE [Suspect]
     Indication: TYPE 2 DIABETES MELLITUS
     Dosage: (3 MG QD ORAL) ; (2 MG FREQUENCY UNSPECIFIED ORAL)
     Route: 048
     Dates: end: 20091025
  3. GLIMEPIRIDE [Suspect]
     Indication: TYPE 2 DIABETES MELLITUS
     Dosage: (3 MG QD ORAL) ; (2 MG FREQUENCY UNSPECIFIED ORAL)
     Route: 048
     Dates: start: 20091026, end: 20091029
  4. GLUCOPHAGE [Suspect]
     Indication: TYPE 2 DIABETES MELLITUS
     Dosage: (1500 MG QD ORAL)
     Route: 048
  5. PREDNISONE [Concomitant]
  6. RABEPRAZOLE SODIUM [Concomitant]
  7. THEOPHYLLINE [Concomitant]

REACTIONS (8)
  - BLOOD BICARBONATE INCREASED [None]
  - BLOOD PH INCREASED [None]
  - BLOOD POTASSIUM DECREASED [None]
  - BLOOD PRESSURE INCREASED [None]
  - CATARACT [None]
  - DISORIENTATION [None]
  - HYPOGLYCAEMIC COMA [None]
  - HYPOTONIA [None]
